FAERS Safety Report 9835857 (Version 2)
Quarter: 2014Q2

REPORT INFORMATION
  Report Type: Spontaneous
  Country: US (occurrence: US)
  Receive Date: 20140122
  Receipt Date: 20140421
  Transmission Date: 20141212
  Serious: No
  Sender: FDA-Public Use
  Company Number: US-GILEAD-2014-0092635

PATIENT
  Sex: Female

DRUGS (6)
  1. LETAIRIS [Suspect]
     Indication: PRODUCT USED FOR UNKNOWN INDICATION
     Dosage: 10 MG, UNK
     Route: 065
     Dates: start: 20110618
  2. REMODULIN [Concomitant]
  3. COUMADIN                           /00014802/ [Concomitant]
  4. LASIX                              /00032601/ [Concomitant]
  5. REVATIO [Concomitant]
  6. SPIRONOLACTONE [Concomitant]

REACTIONS (2)
  - Sciatica [Not Recovered/Not Resolved]
  - Fluid retention [Recovered/Resolved]
